FAERS Safety Report 21450724 (Version 1)
Quarter: 2022Q4

REPORT INFORMATION
  Report Type: Spontaneous
  Country: US (occurrence: None)
  Receive Date: 20221012
  Receipt Date: 20221012
  Transmission Date: 20230112
  Serious: No
  Sender: FDA-Public Use
  Company Number: None

PATIENT
  Age: 25 Year
  Sex: Male
  Weight: 51.75 kg

DRUGS (1)
  1. PERSERIS [Suspect]
     Active Substance: RISPERIDONE
     Dosage: FREQUENCY : ONCE;?
     Route: 030

REACTIONS (1)
  - Product administered at inappropriate site [None]

NARRATIVE: CASE EVENT DATE: 20221011
